FAERS Safety Report 8860751 (Version 4)
Quarter: 2013Q1

REPORT INFORMATION
  Report Type: Spontaneous
  Country: US (occurrence: US)
  Receive Date: 20121026
  Receipt Date: 20130103
  Transmission Date: 20140127
  Serious: Yes (Disabling)
  Sender: FDA-Public Use
  Company Number: US-009507513-1210USA010710

PATIENT
  Age: 90 None
  Sex: Female

DRUGS (10)
  1. ZIOPTAN [Suspect]
     Indication: GLAUCOMA
     Dosage: 2 GTT, QD
     Route: 047
     Dates: start: 20120423, end: 20121005
  2. ZIOPTAN [Suspect]
     Indication: CONJUNCTIVITIS
  3. TOPROL XL TABLETS [Concomitant]
  4. ENALAPRIL MALEATE [Concomitant]
  5. PLAVIX [Concomitant]
  6. LIPITOR [Concomitant]
  7. ADVAIR [Concomitant]
  8. SPIRIVA [Concomitant]
  9. ASPIRIN [Concomitant]
  10. OMEGA-3 MARINE TRIGLYCERIDES [Concomitant]

REACTIONS (4)
  - Corneal endotheliitis [Not Recovered/Not Resolved]
  - Corneal transplant [Recovered/Resolved]
  - Visual acuity reduced [Not Recovered/Not Resolved]
  - Anterior chamber inflammation [Not Recovered/Not Resolved]
